FAERS Safety Report 19360324 (Version 1)
Quarter: 2021Q2

REPORT INFORMATION
  Report Type: Other
  Country: CA (occurrence: CA)
  Receive Date: 20210601
  Receipt Date: 20210601
  Transmission Date: 20210717
  Serious: Yes (Other)
  Sender: FDA-Public Use
  Company Number: CA-ROCHE-2835285

PATIENT
  Sex: Female

DRUGS (2)
  1. TOLTERODINE [Concomitant]
     Active Substance: TOLTERODINE
     Dosage: EVERY 4 WEEKS
  2. OCREVUS [Suspect]
     Active Substance: OCRELIZUMAB
     Indication: PRIMARY PROGRESSIVE MULTIPLE SCLEROSIS
     Dosage: 300 MG AT DAY 0 AND 14, THEN 600 MG EVERY 6 MONTH
     Route: 042
     Dates: start: 20200606

REACTIONS (4)
  - Hypertonic bladder [Recovered/Resolved]
  - Mental disorder [Recovered/Resolved]
  - Cystitis [Recovered/Resolved]
  - Diabetes mellitus [Unknown]
